FAERS Safety Report 7728442-7 (Version None)
Quarter: 2011Q3

REPORT INFORMATION
  Report Type: 
  Country: None (occurrence: None)
  Receive Date: 20110905
  Receipt Date: 20110823
  Transmission Date: 20111222
  Serious: Yes (Other)
  Sender: FDA-Public Use
  Company Number: PHHY2011CA75720

PATIENT
  Sex: Female

DRUGS (3)
  1. ZOLEDRONOC ACID [Suspect]
     Indication: OSTEOPOROSIS
     Dosage: UNK UKN, UNK
     Route: 042
     Dates: start: 20080604
  2. ZOLEDRONOC ACID [Suspect]
     Dosage: UNK UKN, UNK
     Route: 042
     Dates: start: 20090729
  3. ZOLEDRONOC ACID [Suspect]
     Dosage: UNK UKN, UNK
     Route: 042
     Dates: start: 20100729

REACTIONS (1)
  - CYSTITIS [None]
